FAERS Safety Report 6872218-X (Version None)
Quarter: 2010Q3

REPORT INFORMATION
  Report Type: 
  Country: None (occurrence: None)
  Receive Date: 20100723
  Receipt Date: 20100423
  Transmission Date: 20110219
  Serious: Yes (Death, Hospitalization)
  Sender: FDA-Public Use
  Company Number: PHHO2005KR12395

PATIENT
  Sex: Female
  Weight: 60.5 kg

DRUGS (5)
  1. ZOLEDRONATE T29581+SOLINF [Suspect]
     Indication: METASTASES TO BONE
     Dosage: 4 MG, QD
     Dates: start: 20040704
  2. ZOLEDRONATE T29581+SOLINF [Suspect]
     Indication: MULTIPLE MYELOMA
  3. CONOFEN [Concomitant]
     Indication: BONE PAIN
     Dosage: UNK
     Route: 048
     Dates: start: 20040126, end: 20040821
  4. NOVARSC [Concomitant]
     Indication: HYPERTENSION
     Dosage: UNK
     Route: 048
     Dates: end: 20040821
  5. RADIOTHERAPY [Concomitant]
     Dosage: UNK
     Dates: start: 20040702, end: 20040708

REACTIONS (6)
  - BACK PAIN [None]
  - BLOOD ALKALINE PHOSPHATASE INCREASED [None]
  - BREAST CANCER [None]
  - DRUG INEFFECTIVE [None]
  - DYSPNOEA [None]
  - METASTASIS [None]
